FAERS Safety Report 5383706-X (Version None)
Quarter: 2007Q3

REPORT INFORMATION
  Report Type: 
  Country: None (occurrence: None)
  Receive Date: 20070706
  Receipt Date: 20070627
  Transmission Date: 20080115
  Serious: Yes (Other)
  Sender: FDA-Public Use
  Company Number: JPI-P-001661

PATIENT
  Age: 39 Year
  Sex: Female
  Weight: 71.2147 kg

DRUGS (6)
  1. XYREM [Suspect]
     Indication: NARCOLEPSY
     Dosage: 7.5 GM (7.5 MG, 1 IN 1 D), ORAL
     Route: 048
     Dates: start: 20070601
  2. PAROXETINE [Concomitant]
  3. ESOMEPRAZOLE (ESOMEPRAZOLE) [Concomitant]
  4. GABAPENTIN [Concomitant]
  5. STOOL SOFTENER (DOCUSATE SODIUM) [Concomitant]
  6. POLYETHYLENE GLYCOL 3350 (MACROGOL) [Concomitant]

REACTIONS (4)
  - ABDOMINAL DISTENSION [None]
  - ASCITES [None]
  - EYE SWELLING [None]
  - OEDEMA PERIPHERAL [None]
